FAERS Safety Report 22209675 (Version 1)
Quarter: 2023Q2

REPORT INFORMATION
  Report Type: Spontaneous
  Country: US (occurrence: US)
  Receive Date: 20230414
  Receipt Date: 20230414
  Transmission Date: 20230722
  Serious: No
  Sender: FDA-Public Use
  Company Number: US-AMGEN-USASP2023063703

PATIENT
  Age: 73 Year

DRUGS (1)
  1. ENBREL [Suspect]
     Active Substance: ETANERCEPT
     Indication: Rheumatoid arthritis
     Dosage: 50 MILLIGRAM, Q3WK
     Route: 058

REACTIONS (2)
  - Device difficult to use [Unknown]
  - Off label use [Unknown]

NARRATIVE: CASE EVENT DATE: 20230409
